FAERS Safety Report 13529249 (Version 1)
Quarter: 2017Q2

REPORT INFORMATION
  Report Type: Spontaneous
  Country: US (occurrence: US)
  Receive Date: 20170509
  Receipt Date: 20170509
  Transmission Date: 20170830
  Serious: No
  Sender: FDA-Public Use
  Company Number: US-ROCHE-GNE310543

PATIENT
  Sex: Female
  Weight: 94.43 kg

DRUGS (1)
  1. XOLAIR [Suspect]
     Active Substance: OMALIZUMAB
     Indication: ASTHMA
     Dosage: 250 UNK, 1/MONTH
     Route: 058

REACTIONS (1)
  - Weight increased [Unknown]
